FAERS Safety Report 20222071 (Version 1)
Quarter: 2021Q4

REPORT INFORMATION
  Report Type: Spontaneous
  Country: US (occurrence: None)
  Receive Date: 20211222
  Receipt Date: 20211222
  Transmission Date: 20220303
  Serious: No
  Sender: FDA-Public Use
  Company Number: None

PATIENT
  Age: 64 Year
  Sex: Male
  Weight: 54 kg

DRUGS (9)
  1. AKYNZEO [Suspect]
     Active Substance: NETUPITANT\PALONOSETRON HYDROCHLORIDE
     Indication: Lung neoplasm malignant
     Dosage: OTHER FREQUENCY : ONCE EVERY 3 WEEKS;?
     Route: 042
  2. TECENTRIQ [Concomitant]
     Active Substance: ATEZOLIZUMAB
  3. DEXAMETHASONE [Concomitant]
     Active Substance: DEXAMETHASONE
  4. CARBOPLATIN [Concomitant]
     Active Substance: CARBOPLATIN
  5. Etoposide 160mg [Concomitant]
  6. DICLOFENAC [Concomitant]
     Active Substance: DICLOFENAC
  7. HYDROCHLOROTHIAZIDE [Concomitant]
     Active Substance: HYDROCHLOROTHIAZIDE
  8. KEPPRA XR [Concomitant]
     Active Substance: LEVETIRACETAM
  9. OXYCODONE [Concomitant]
     Active Substance: OXYCODONE

REACTIONS (1)
  - Hospice care [None]

NARRATIVE: CASE EVENT DATE: 20211222
